FAERS Safety Report 10361111 (Version 1)
Quarter: 2014Q3

REPORT INFORMATION
  Report Type: Spontaneous
  Country: CA (occurrence: None)
  Receive Date: 20140731
  Receipt Date: 20140731
  Transmission Date: 20150326
  Serious: Yes (Hospitalization, Other)
  Sender: FDA-Public Use
  Company Number: CA-016184

PATIENT
  Age: 65 Year
  Sex: Male

DRUGS (17)
  1. CHOLECALCIFEROL [Concomitant]
     Active Substance: CHOLECALCIFEROL
  2. PRAMIPEXOLE [Concomitant]
     Active Substance: PRAMIPEXOLE
  3. CLONAZEPINE [Concomitant]
     Active Substance: CLONAZEPAM
  4. PANTOLOC /01263204/ [Concomitant]
     Active Substance: PANTOPRAZOLE SODIUM
  5. HYDROMORPH CONTIN [Concomitant]
     Active Substance: HYDROMORPHONE
  6. ACETAMINOPHEN. [Concomitant]
     Active Substance: ACETAMINOPHEN
  7. CALCIUM CARBONATE. [Concomitant]
     Active Substance: CALCIUM CARBONATE
  8. ASA [Concomitant]
     Active Substance: ASPIRIN
  9. DENOSUMAB [Concomitant]
     Active Substance: DENOSUMAB
  10. HYDROMORPHONE [Concomitant]
     Active Substance: HYDROMORPHONE
  11. ACEBUTOLOL [Concomitant]
     Active Substance: ACEBUTOLOL
  12. QUETIAPINE [Concomitant]
     Active Substance: QUETIAPINE
  13. FIRMAGON [Suspect]
     Active Substance: DEGARELIX ACETATE
     Indication: PROSTATE CANCER
     Dosage: 1X/MONTH
     Route: 058
     Dates: start: 20120515
  14. PRAMIPEXOLE [Concomitant]
     Active Substance: PRAMIPEXOLE
  15. SENOKOT [Concomitant]
     Active Substance: SENNOSIDES
  16. POLYETHYLENE GLYCOL [Concomitant]
     Active Substance: POLYETHYLENE GLYCOLS
  17. MOMETASONE [Concomitant]
     Active Substance: MOMETASONE

REACTIONS (2)
  - Pyrexia [None]
  - Acne [None]
